FAERS Safety Report 8584741-0 (Version None)
Quarter: 2012Q3

REPORT INFORMATION
  Report Type: 
  Country: None (occurrence: None)
  Receive Date: 20120810
  Receipt Date: 20120731
  Transmission Date: 20120928
  Serious: Yes (Hospitalization, Disabling)
  Sender: FDA-Public Use
  Company Number: US-BAYER-2012-079037

PATIENT
  Age: 41 Year
  Sex: Female

DRUGS (12)
  1. LABETALOL HCL [Concomitant]
     Dosage: 20 MG, UNK
  2. IRON SUPPLEMENT [Concomitant]
     Dosage: UNK
  3. SOLU-MEDROL [Concomitant]
     Dosage: 125 MG, UNK
     Route: 042
  4. PREDNISONE TAB [Concomitant]
     Indication: DERMATITIS CONTACT
     Dosage: 60 MG DAILY FOR 3 DAYS, 40 MG DAILY FOR 3 DAYS
     Dates: start: 20040916
  5. YASMIN [Suspect]
     Dosage: UNK
  6. DILAUDID [Concomitant]
     Dosage: UNK
  7. PROTONIX [Concomitant]
     Dosage: UNK
  8. BENADRYL [Concomitant]
     Dosage: UNK
  9. PHENERGAN HCL [Concomitant]
     Dosage: UNK
  10. LIPITOR [Concomitant]
     Dosage: UNK
  11. DIGOXIN [Concomitant]
     Dosage: UNK
  12. ZEBETA [Concomitant]
     Dosage: UNK

REACTIONS (1)
  - BASILAR ARTERY THROMBOSIS [None]
